FAERS Safety Report 4730739-X (Version None)
Quarter: 2005Q3

REPORT INFORMATION
  Report Type: 
  Country: None (occurrence: None)
  Receive Date: 20050725
  Receipt Date: 20050222
  Transmission Date: 20060218
  Serious: No
  Sender: FDA-Public Use
  Company Number: USA050291530

PATIENT
  Age: 40 Year
  Sex: Male
  Weight: 74 kg

DRUGS (1)
  1. STRATTERA [Suspect]
     Indication: ATTENTION DEFICIT/HYPERACTIVITY DISORDER
     Dosage: 40 MG DAY
     Dates: start: 20050219

REACTIONS (3)
  - FEELING ABNORMAL [None]
  - SEXUAL DYSFUNCTION [None]
  - SLEEP DISORDER [None]
